FAERS Safety Report 5151457-2 (Version None)
Quarter: 2006Q4

REPORT INFORMATION
  Report Type: 
  Country: None (occurrence: None)
  Receive Date: 20061114
  Receipt Date: 20061114
  Transmission Date: 20070319
  Serious: No
  Sender: FDA-Public Use
  Company Number: None

PATIENT
  Sex: Female

DRUGS (1)
  1. GEMFIBROZIL 600MG ORAL TABLET [Suspect]
     Indication: BLOOD TRIGLYCERIDES INCREASED
     Dosage: ONE 600MG TABLET BY MOUTH TWICE A DAY
     Route: 048
     Dates: start: 20061006, end: 20061025

REACTIONS (8)
  - BLOOD PRESSURE DECREASED [None]
  - HEARING IMPAIRED [None]
  - NAUSEA [None]
  - PHARMACEUTICAL PRODUCT COMPLAINT [None]
  - PRURITUS GENERALISED [None]
  - TINNITUS [None]
  - VERTIGO [None]
  - VOMITING [None]
